FAERS Safety Report 8440176 (Version 2)
Quarter: 2014Q1

REPORT INFORMATION
  Report Type: Spontaneous
  Country: US (occurrence: None)
  Receive Date: 20120130
  Receipt Date: 20140131
  Transmission Date: 20141002
  Serious: Yes (Other)
  Sender: FDA-Public Use
  Company Number: 031240

PATIENT
  Age: 17 Year
  Sex: Male

DRUGS (3)
  1. KEPPRA [Suspect]
     Indication: GRAND MAL CONVULSION
     Dosage: (250 MG BID ORAL) ; (500 MG BID ORAL)
     Route: 048
     Dates: start: 20101121, end: 201011
  2. CHLORPROMAZINE HYDROCHLORIDE [Suspect]
     Indication: AGGRESSION
     Route: 048
     Dates: end: 20101125
  3. PHENYTOIN [Concomitant]

REACTIONS (2)
  - Pancreatitis acute [None]
  - Convulsion [None]
